FAERS Safety Report 6293530-1 (Version None)
Quarter: 2009Q3

REPORT INFORMATION
  Report Type: 
  Country: None (occurrence: None)
  Receive Date: 20090729
  Receipt Date: 20090715
  Transmission Date: 20100115
  Serious: Yes (Other)
  Sender: FDA-Public Use
  Company Number: 2009S1000233

PATIENT
  Sex: Female

DRUGS (2)
  1. ACITRETIN [Suspect]
     Indication: KERATOSIS FOLLICULAR
     Dosage: QD; PO
     Route: 048
     Dates: start: 19910101
  2. CONTRACEPTIVES NOS [Concomitant]

REACTIONS (3)
  - DRUG EXPOSURE DURING PREGNANCY [None]
  - FORCEPS DELIVERY [None]
  - PREGNANCY ON CONTRACEPTIVE [None]
